FAERS Safety Report 4865865-8 (Version None)
Quarter: 2005Q4

REPORT INFORMATION
  Report Type: 
  Country: None (occurrence: None)
  Receive Date: 20051220
  Receipt Date: 20051208
  Transmission Date: 20060501
  Serious: Yes (Hospitalization, Other)
  Sender: FDA-Public Use
  Company Number: 2005164506

PATIENT
  Age: 53 Year
  Sex: Female

DRUGS (2)
  1. FOSPHENYTOIN SODIUM [Suspect]
     Indication: ILL-DEFINED DISORDER
     Dates: start: 20050214, end: 20051130
  2. PHENYTOIN [Suspect]
     Indication: ILL-DEFINED DISORDER
     Dosage: ORAL
     Route: 048
     Dates: end: 20050628

REACTIONS (2)
  - ENCEPHALITIS [None]
  - HYPERSENSITIVITY [None]
